FAERS Safety Report 18755412 (Version 1)
Quarter: 2021Q1

REPORT INFORMATION
  Report Type: Spontaneous
  Country: US (occurrence: US)
  Receive Date: 20210115
  Receipt Date: 20210115
  Transmission Date: 20210419
  Serious: No
  Sender: FDA-Public Use
  Company Number: None

PATIENT
  Age: 42 Year
  Sex: Female
  Weight: 87.3 kg

DRUGS (1)
  1. BUPRENORPHINE?NALOXONE TAB 8?2MG [Suspect]
     Active Substance: BUPRENORPHINE HYDROCHLORIDE\NALOXONE HYDROCHLORIDE
     Indication: DRUG USE DISORDER
     Route: 060
     Dates: start: 20210111, end: 20210115

REACTIONS (1)
  - Tooth loss [None]

NARRATIVE: CASE EVENT DATE: 20210113
